FAERS Safety Report 21772822 (Version 3)
Quarter: 2024Q1

REPORT INFORMATION
  Report Type: Spontaneous
  Country: CA (occurrence: CA)
  Receive Date: 20221223
  Receipt Date: 20240311
  Transmission Date: 20240410
  Serious: Yes (Other)
  Sender: FDA-Public Use
  Company Number: CA-VIIV HEALTHCARE LIMITED-CA2022188709

PATIENT
  Age: 34 Year
  Sex: Male

DRUGS (4)
  1. RILPIVIRINE [Suspect]
     Active Substance: RILPIVIRINE
     Indication: HIV infection
     Dosage: UNK CABENUVA (600 MG) CABOTEGRAVIR INJECTION AND (900 MG) RILPIVIRINE INJECTION
     Route: 030
     Dates: start: 20220914
  2. RILPIVIRINE [Suspect]
     Active Substance: RILPIVIRINE
     Dosage: UNK UNK, Q2M (CABOTEGRAVIR 600MG/3ML RILPIVIRINE 900MG/3ML)
     Route: 030
     Dates: start: 20220910
  3. CABOTEGRAVIR [Suspect]
     Active Substance: CABOTEGRAVIR
     Indication: HIV infection
     Dosage: UNK CABENUVA (600 MG) CABOTEGRAVIR INJECTION AND (900 MG) RILPIVIRINE INJECTION
     Route: 030
     Dates: start: 20220914
  4. CABOTEGRAVIR [Suspect]
     Active Substance: CABOTEGRAVIR
     Dosage: UNK UNK, Q2M (CABOTEGRAVIR 600MG/3ML RILPIVIRINE 900MG/3ML)
     Route: 030
     Dates: start: 20220910

REACTIONS (6)
  - Syphilis [Unknown]
  - Bowel movement irregularity [Not Recovered/Not Resolved]
  - Polyp [Unknown]
  - Faeces discoloured [Not Recovered/Not Resolved]
  - Faeces soft [Not Recovered/Not Resolved]
  - Rectal prolapse [Unknown]

NARRATIVE: CASE EVENT DATE: 20220101
